FAERS Safety Report 12062691 (Version 1)
Quarter: 2016Q1

REPORT INFORMATION
  Report Type: Spontaneous
  Country: US (occurrence: US)
  Receive Date: 20160210
  Receipt Date: 20160210
  Transmission Date: 20160526
  Serious: No
  Sender: FDA-Public Use
  Company Number: US-BAYER-2016-023710

PATIENT
  Age: 85 Year
  Sex: Female
  Weight: 65.31 kg

DRUGS (5)
  1. CLARITIN [Suspect]
     Active Substance: LORATADINE
     Dosage: UNK UNK, PRN
     Route: 048
     Dates: start: 20160203
  2. POTASSIUM [Concomitant]
     Active Substance: POTASSIUM
  3. BAYER LOW DOSE [Concomitant]
     Active Substance: ASPIRIN
  4. TYLENOL PM [DIPHENHYDRAMINE HYDROCHLORIDE,PARACETAMOL] [Concomitant]
  5. LOVASTATIN. [Concomitant]
     Active Substance: LOVASTATIN

REACTIONS (1)
  - Diarrhoea [Not Recovered/Not Resolved]

NARRATIVE: CASE EVENT DATE: 20160203
